FAERS Safety Report 18333187 (Version 2)
Quarter: 2020Q4

REPORT INFORMATION
  Report Type: Spontaneous
  Country: CZ (occurrence: CZ)
  Receive Date: 20201001
  Receipt Date: 20201202
  Transmission Date: 20210113
  Serious: Yes (Death)
  Sender: FDA-Public Use
  Company Number: CZ-BIOGEN-2020BI00928374

PATIENT

DRUGS (1)
  1. TYSABRI [Suspect]
     Active Substance: NATALIZUMAB
     Indication: MULTIPLE SCLEROSIS
     Route: 065
     Dates: end: 20110112

REACTIONS (2)
  - Death [Fatal]
  - Prescribed underdose [Unknown]

NARRATIVE: CASE EVENT DATE: 20200919
